FAERS Safety Report 8192106-9 (Version None)
Quarter: 2012Q1

REPORT INFORMATION
  Report Type: 
  Country: None (occurrence: None)
  Receive Date: 20120307
  Receipt Date: 20120224
  Transmission Date: 20120608
  Serious: Yes (Hospitalization, Other)
  Sender: FDA-Public Use
  Company Number: JP-PFIZER INC-2012055548

PATIENT
  Age: 79 Year
  Sex: Female

DRUGS (3)
  1. BEHYD [Concomitant]
     Route: 048
  2. LEVOFLOXACIN [Concomitant]
     Dosage: 250 MG, 1X/DAY
     Route: 048
  3. ZOSYN [Suspect]
     Indication: BRONCHOPNEUMONIA
     Dosage: 9 G, UNK
     Dates: start: 20120130, end: 20120203

REACTIONS (1)
  - GASTROENTERITIS STAPHYLOCOCCAL [None]
